FAERS Safety Report 8593118-3 (Version None)
Quarter: 2012Q3

REPORT INFORMATION
  Report Type: 
  Country: None (occurrence: None)
  Receive Date: 20120814
  Receipt Date: 20120727
  Transmission Date: 20120928
  Serious: No
  Sender: FDA-Public Use
  Company Number: US-009507513-1207USA012016

PATIENT

DRUGS (19)
  1. HUMULIN R [Concomitant]
     Dosage: 40 IU, QAM
     Route: 058
  2. SPIRIVA [Concomitant]
     Dosage: UNK, QD
     Route: 045
  3. ASPIRIN [Concomitant]
     Route: 048
  4. NOVOLIN 70/30 [Concomitant]
     Dosage: 35 IU, QAM
     Route: 058
  5. LASIX [Concomitant]
     Route: 048
  6. METOPROLOL SUCCINATE [Suspect]
     Route: 048
  7. ALBUTEROL [Concomitant]
     Dosage: 2 DF, QID
     Route: 048
  8. METOPROLOL TARTRATE [Suspect]
     Route: 048
  9. NOVOLIN 70/30 [Concomitant]
     Dosage: 15 IU, QPM
     Route: 058
  10. CARVEDILOL [Concomitant]
     Route: 048
  11. PRINIVIL [Suspect]
     Route: 048
  12. AMIODARONE HCL [Concomitant]
     Route: 048
  13. HUMULIN R [Concomitant]
     Dosage: 23 IU, QPM
     Route: 058
  14. LORTAB [Concomitant]
     Dosage: 325 MG, QD
     Route: 048
  15. ALLOPURINOL [Concomitant]
     Route: 048
  16. PLAVIX [Concomitant]
     Route: 048
  17. SYMBICORT [Suspect]
     Dosage: 4.5 MICROGRAM, BID
     Route: 045
  18. LOVASTATIN [Concomitant]
     Route: 048
  19. LOVASTATIN [Concomitant]
     Route: 048

REACTIONS (11)
  - HYPERTENSION [None]
  - GOUT [None]
  - ASTHMA [None]
  - TYPE 2 DIABETES MELLITUS [None]
  - RENAL FAILURE [None]
  - CHRONIC OBSTRUCTIVE PULMONARY DISEASE [None]
  - RHINITIS ALLERGIC [None]
  - CATARACT [None]
  - SLEEP APNOEA SYNDROME [None]
  - CORONARY ARTERY DISEASE [None]
  - HYPERLIPIDAEMIA [None]
